FAERS Safety Report 4731715-3 (Version None)
Quarter: 2005Q3

REPORT INFORMATION
  Report Type: 
  Country: None (occurrence: None)
  Receive Date: 20050725
  Receipt Date: 20041105
  Transmission Date: 20060218
  Serious: Yes (Hospitalization, Disabling)
  Sender: FDA-Public Use
  Company Number: WAES 0306USA00811

PATIENT
  Age: 38 Year
  Sex: Male
  Weight: 71.2147 kg

DRUGS (6)
  1. VIOXX [Suspect]
     Indication: BACK PAIN
     Dosage: 50 MG / PO
     Route: 048
  2. ATENOLOL MSD [Concomitant]
  3. HYDROCODONE BITARTRATE + ACETAMINOPHEN [Concomitant]
  4. PEPCID [Concomitant]
  5. VICODIN [Concomitant]
  6. KETOROLAC [Concomitant]

REACTIONS (17)
  - ABDOMINAL PAIN [None]
  - ADVERSE EVENT [None]
  - BREAST MASS [None]
  - DERMATITIS [None]
  - DIZZINESS [None]
  - ECZEMA [None]
  - FATIGUE [None]
  - HERPES ZOSTER [None]
  - HYPERTENSION [None]
  - LIVER FUNCTION TEST ABNORMAL [None]
  - MEDICATION ERROR [None]
  - NASOPHARYNGITIS [None]
  - PALPITATIONS [None]
  - PHARYNGITIS [None]
  - SOMNOLENCE [None]
  - STRESS [None]
  - UPPER RESPIRATORY TRACT INFECTION [None]
